FAERS Safety Report 4550090-0 (Version None)
Quarter: 2005Q1

REPORT INFORMATION
  Report Type: 
  Country: None (occurrence: None)
  Receive Date: 20050110
  Receipt Date: 20041229
  Transmission Date: 20050727
  Serious: Yes (Other)
  Sender: FDA-Public Use
  Company Number: 2004063257

PATIENT
  Age: 63 Year
  Sex: Female
  Weight: 95.2554 kg

DRUGS (15)
  1. NEURONTIN [Suspect]
     Indication: NEUROPATHY
     Dosage: 300 MG (100 MG, 3 IN 1 D), ORAL
     Route: 048
     Dates: start: 20040608, end: 20040701
  2. CELEBREX [Suspect]
     Indication: ILL-DEFINED DISORDER
  3. AMOXICILLIN W/CLAVULANATE POTASSIUM (AMOXICILLIN, CLAVULANATE POTASSIU [Concomitant]
  4. METOPROLOL TARTRATE [Concomitant]
  5. METFORMIN HCL [Concomitant]
  6. HYDROCHLOROTHIAZIDE [Concomitant]
  7. REPAGLINIDE (REPAGLINIDE) [Concomitant]
  8. MOEXIPRIL HYDROCHLORIDE (MOEXIPRIL HYDROCHLORIDE) [Concomitant]
  9. NITROGLYCERIN [Concomitant]
  10. DESLORATADINE (DESLORATADINE) [Concomitant]
  11. CLAVULIN (AMOXICILLIN TRIHYDRATE, CLAVULANATE POTASSIUM) [Concomitant]
  12. CLOPIDOGREL BISULFATE [Concomitant]
  13. LOTREL [Concomitant]
  14. ALL OTHER THERAPEUTIC PRODUCTS (ALL OTHER THERAPEUTIC PRODUCTS) [Concomitant]
  15. LOVASTATIN [Concomitant]

REACTIONS (10)
  - ACTIVITIES OF DAILY LIVING IMPAIRED [None]
  - AGGRESSION [None]
  - AGITATION [None]
  - DEPRESSION [None]
  - DIABETES MELLITUS INADEQUATE CONTROL [None]
  - GASTRIC DISORDER [None]
  - HEART RATE INCREASED [None]
  - HYPERTENSION [None]
  - MYOCARDIAL INFARCTION [None]
  - PHYSICAL ASSAULT [None]
